FAERS Safety Report 9844944 (Version 1)
Quarter: 2014Q1

REPORT INFORMATION
  Report Type: Spontaneous
  Country: US (occurrence: US)
  Receive Date: 20140127
  Receipt Date: 20140127
  Transmission Date: 20141002
  Serious: No
  Sender: FDA-Public Use
  Company Number: US-BAYER-2014-013375

PATIENT
  Age: 52 Year
  Sex: Female
  Weight: 61.22 kg

DRUGS (4)
  1. ALEVE CAPLET [Suspect]
     Indication: HEADACHE
     Dosage: UNK DF, PRN
     Route: 048
  2. SYNTHROID [Concomitant]
  3. CLARITIN D [Concomitant]
  4. PREMARIN [Concomitant]

REACTIONS (1)
  - Drug ineffective [None]
